FAERS Safety Report 8376555-1 (Version None)
Quarter: 2012Q2

REPORT INFORMATION
  Report Type: 
  Country: None (occurrence: None)
  Receive Date: 20120522
  Receipt Date: 20120507
  Transmission Date: 20120825
  Serious: Yes (Hospitalization)
  Sender: FDA-Public Use
  Company Number: JP-UCBSA-054548

PATIENT
  Age: 48 Year
  Sex: Female

DRUGS (25)
  1. DICLOFENAC SODIUM [Concomitant]
     Dosage: DAILY DOSE: 25 MG
     Dates: start: 20120330, end: 20120330
  2. DICLOFENAC SODIUM [Concomitant]
     Dosage: 25 MG SINGLE
     Dates: start: 20120409
  3. SODIUM HYALURONATE [Concomitant]
     Dosage: QS PRN
     Dates: start: 20111128
  4. FRADIOMYCIN SULFATE_METHYLPREDNISOLONE [Concomitant]
     Dosage: QS PRN
     Dates: start: 20111128
  5. LEI GONG TENG [Concomitant]
     Dosage: DAILY DOSE: 3 TAB
     Dates: start: 20120410
  6. TACROLIMUS [Concomitant]
     Dosage: DAILY DOSE: 3 MG
     Dates: start: 20110818, end: 20120319
  7. DICLOFENAC SODIUM [Concomitant]
     Dosage: DAILY DOSE: 50 MG
     Dates: start: 20120327, end: 20120327
  8. LEI GONG TENG [Concomitant]
     Dosage: DAILY DOSE: 3 TAB
     Dates: start: 20111222, end: 20120319
  9. EPINASTINE HYDROCHLORIDE [Concomitant]
     Dosage: DAILY DOSE: 20 MG
     Dates: start: 20120312, end: 20120418
  10. SODIUM CROMOGLICATE [Concomitant]
     Dosage: QS PRN
     Dates: start: 20120312, end: 20120418
  11. CEFCAPENE PIVOXIL HYDROCHLORIDE [Concomitant]
     Dosage: DAILY DOSE : 300 MG
     Dates: start: 20120329, end: 20120402
  12. CIMZIA [Suspect]
     Indication: RHEUMATOID ARTHRITIS
     Route: 058
     Dates: start: 20100120
  13. CIMZIA [Suspect]
     Dosage: 275-08-003: 400MG EVERY TWO WEEKS (0, 2 + 4) FOLLOWED BY 200 MG EVERY 2 WEEKS
     Route: 058
     Dates: start: 20090708
  14. PREDNISOLONE [Concomitant]
     Dosage: DAILY DOSE: 1 MG
     Dates: start: 20120215, end: 20120409
  15. TACROLIMUS [Concomitant]
     Dosage: DAILY DOSE: 3 MG
     Dates: start: 20120408
  16. SENNOSIDE [Concomitant]
     Dosage: DAILY DOSE: 24 MG
     Dates: start: 20120326, end: 20120326
  17. ZOPICLONE [Concomitant]
     Dosage: DAILY DOSE: 7.5 MG
     Dates: start: 20120326, end: 20120326
  18. CELECOXIB [Concomitant]
     Dosage: DAILY DOSE: 400 MG
     Dates: start: 20090601
  19. ALENDRONATE SODIUM [Concomitant]
     Dates: start: 20090223
  20. SODIUM FERROUS CITRATE [Concomitant]
     Dosage: DAILY DOSE : 100 MG
     Dates: start: 20120328, end: 20120404
  21. FLUOROMETHOLONE [Concomitant]
     Dosage: ONCE NIGHTLY
     Dates: start: 20120404
  22. BAKUMONDO-TO [Concomitant]
     Dosage: DAILY: 9 G
     Dates: start: 20120215
  23. SENNOSIDE [Concomitant]
     Dosage: DAILY DOSE: 24 MG
     Dates: start: 20120330, end: 20120330
  24. OMEPRAZOLE [Concomitant]
     Dosage: DAILY DOSE: 20 MG
     Dates: start: 20090601
  25. PREDNISOLONE [Concomitant]
     Dosage: DAILY DOSE: 2 MG
     Dates: start: 20120410

REACTIONS (2)
  - OVARIAN NEOPLASM [None]
  - PROCEDURAL PAIN [None]
